FAERS Safety Report 4379278-9 (Version None)
Quarter: 2004Q2

REPORT INFORMATION
  Report Type: 
  Country: None (occurrence: None)
  Receive Date: 20040610
  Receipt Date: 20040602
  Transmission Date: 20050107
  Serious: Yes (Hospitalization)
  Sender: FDA-Public Use
  Company Number: US-SHR-04-022678

PATIENT
  Age: 46 Year
  Sex: Female

DRUGS (1)
  1. BETASERON (INTERFERON BETA- 1B) INJECTION, 250 UG [Suspect]
     Indication: MULTIPLE SCLEROSIS
     Dosage: 2 MIU, EVERY 2 D, SUBCUTANEOUS
     Route: 058
     Dates: start: 20040307, end: 20040323

REACTIONS (3)
  - BLOOD POTASSIUM DECREASED [None]
  - CONDITION AGGRAVATED [None]
  - CROHN'S DISEASE [None]
